FAERS Safety Report 6819200-6 (Version None)
Quarter: 2010Q3

REPORT INFORMATION
  Report Type: 
  Country: None (occurrence: None)
  Receive Date: 20100707
  Receipt Date: 20100628
  Transmission Date: 20110219
  Serious: Yes (Hospitalization)
  Sender: FDA-Public Use
  Company Number: FR-B.I. PHARMACEUTICALS,INC./RIDGEFIELD-2010-FF-00533FF

PATIENT

DRUGS (2)
  1. VIRAMUNE [Suspect]
     Dates: start: 20070214
  2. RETROVIR [Suspect]
     Dates: start: 20070214

REACTIONS (8)
  - ANAEMIA [None]
  - ANAEMIA NEONATAL [None]
  - CEREBRAL HAEMORRHAGE [None]
  - CEREBRAL HAEMORRHAGE NEONATAL [None]
  - HYPERTONIA [None]
  - HYPERTONIA NEONATAL [None]
  - NEONATAL RESPIRATORY DISTRESS SYNDROME [None]
  - RESPIRATORY DISTRESS [None]
